FAERS Safety Report 4351371-6 (Version None)
Quarter: 2004Q2

REPORT INFORMATION
  Report Type: 
  Country: None (occurrence: None)
  Receive Date: 20040503
  Receipt Date: 20040319
  Transmission Date: 20050107
  Serious: Yes (Hospitalization)
  Sender: FDA-Public Use
  Company Number: PHBS2004JP03934

PATIENT
  Age: 12 Year
  Sex: Female
  Weight: 43 kg

DRUGS (3)
  1. VOLTAREN [Suspect]
     Indication: PHARYNGITIS
     Dosage: 12.5 MG/DAY
     Route: 054
     Dates: start: 20040309, end: 20040311
  2. PL GRAN. [Concomitant]
     Indication: PHARYNGITIS
     Dosage: 2.0 MG/DAY
     Route: 054
     Dates: start: 20040309, end: 20040311
  3. DIPYRIDAMOLE [Concomitant]
     Indication: NASOPHARYNGITIS
     Dosage: 45 MG/DAY
     Route: 048
     Dates: start: 20040309, end: 20040311

REACTIONS (11)
  - 2',5'-OLIGOADENYLATE SYNTHETASE TEST INCREASED [None]
  - ALANINE AMINOTRANSFERASE INCREASED [None]
  - ASPARTATE AMINOTRANSFERASE INCREASED [None]
  - BETA 2 MICROGLOBULIN URINE INCREASED [None]
  - BLOOD LACTATE DEHYDROGENASE INCREASED [None]
  - COAGULOPATHY [None]
  - HEPATIC FUNCTION ABNORMAL [None]
  - HISTIOCYTOSIS HAEMATOPHAGIC [None]
  - PLATELET COUNT DECREASED [None]
  - SERUM FERRITIN INCREASED [None]
  - WHITE BLOOD CELL COUNT DECREASED [None]
